FAERS Safety Report 19668896 (Version 2)
Quarter: 2021Q3

REPORT INFORMATION
  Report Type: Spontaneous
  Country: US (occurrence: US)
  Receive Date: 20210806
  Receipt Date: 20210826
  Transmission Date: 20211014
  Serious: No
  Sender: FDA-Public Use
  Company Number: US-SA-2021SA259200

PATIENT
  Age: 29 Year
  Sex: Female

DRUGS (2)
  1. BENADRYL [Concomitant]
     Active Substance: DIPHENHYDRAMINE HYDROCHLORIDE
  2. DUPIXENT [Suspect]
     Active Substance: DUPILUMAB
     Indication: DERMATITIS ATOPIC
     Dosage: 300 MG, QOW
     Route: 058
     Dates: start: 20210721

REACTIONS (9)
  - Tongue discomfort [Unknown]
  - Glossodynia [Unknown]
  - Tongue discolouration [Unknown]
  - Swollen tongue [Unknown]
  - Oral herpes [Unknown]
  - Hypoaesthesia oral [Unknown]
  - Aptyalism [Unknown]
  - Drug hypersensitivity [Unknown]
  - Oesophagitis [Unknown]

NARRATIVE: CASE EVENT DATE: 2021
